FAERS Safety Report 19099321 (Version 1)
Quarter: 2021Q2

REPORT INFORMATION
  Report Type: Report from Study
  Country: None (occurrence: US)
  Receive Date: 20210406
  Receipt Date: 20210406
  Transmission Date: 20210717
  Serious: Yes (Other)
  Sender: FDA-Public Use
  Company Number: US-ABBVIE-21K-163-3841559-00

PATIENT
  Sex: Female

DRUGS (5)
  1. HUMIRA [Suspect]
     Active Substance: ADALIMUMAB
     Route: 058
     Dates: start: 2011, end: 2016
  2. HUMIRA [Suspect]
     Active Substance: ADALIMUMAB
     Route: 058
     Dates: start: 2016, end: 2019
  3. HUMIRA [Suspect]
     Active Substance: ADALIMUMAB
     Indication: PSORIATIC ARTHROPATHY
     Route: 058
     Dates: start: 2010
  4. HUMIRA [Suspect]
     Active Substance: ADALIMUMAB
     Route: 058
     Dates: start: 201908, end: 2019
  5. HUMIRA [Suspect]
     Active Substance: ADALIMUMAB
     Route: 058
     Dates: start: 2019

REACTIONS (14)
  - Cervical spinal stenosis [Unknown]
  - Grip strength decreased [Recovered/Resolved]
  - Stress [Recovered/Resolved]
  - Asthma [Unknown]
  - Pain [Unknown]
  - Therapeutic response shortened [Unknown]
  - Paraesthesia [Unknown]
  - Spinal fusion surgery [Unknown]
  - Intervertebral disc protrusion [Unknown]
  - Psoriasis [Unknown]
  - Pulmonary fibrosis [Unknown]
  - Spinal disorder [Unknown]
  - Secretion discharge [Unknown]
  - Psoriatic arthropathy [Recovered/Resolved]

NARRATIVE: CASE EVENT DATE: 2010
